FAERS Safety Report 9429040 (Version 1)
Quarter: 2013Q3

REPORT INFORMATION
  Report Type: Spontaneous
  Country: NL (occurrence: NL)
  Receive Date: 20130730
  Receipt Date: 20130730
  Transmission Date: 20140515
  Serious: Yes (Hospitalization, Other)
  Sender: FDA-Public Use
  Company Number: NL-PFIZER INC-2013174821

PATIENT
  Age: 59 Year
  Sex: Female
  Weight: 78 kg

DRUGS (16)
  1. LYRICA [Suspect]
     Indication: NEUROPATHY PERIPHERAL
     Dosage: 300 MG, 2X/DAY
  2. NOVORAPID [Concomitant]
     Dosage: 6.5 UNK, UNK
  3. AMITRIPTYLINE [Concomitant]
     Dosage: 25 MG, 2X/DAY
  4. ASCAL [Concomitant]
     Dosage: 100 MG, 1X/DAY
  5. ATACAND [Concomitant]
     Dosage: 32 MG, 1X/DAY
  6. CELEBREX [Concomitant]
     Dosage: 100 MG, 1X/DAY
  7. CYMBALTA [Concomitant]
     Dosage: 30 MG, 2X/DAY
  8. DOMPERIDONE [Concomitant]
     Dosage: 10 MG, 4X/DAY
  9. PANTOPRAZOL [Concomitant]
     Dosage: 10 MG, 4X/DAY
  10. PARACETAMOL WITH CODEINE [Concomitant]
     Dosage: 500/20 MG, 3X/DAY
  11. SLOW-K [Concomitant]
     Dosage: 600 MG, 3X/DAY
  12. VITAMIN B COMPLEX [Concomitant]
     Dosage: UNK, 3X/DAY
  13. FERROGRADUMET [Concomitant]
     Dosage: 105 MG, 1X/DAY
  14. METOPROLOL [Concomitant]
     Dosage: 100 MG, 2X/DAY
  15. NITROLINGUAL-SPRAY N [Concomitant]
     Dosage: 0.4 MG, AS NEEDED
  16. INEGY [Concomitant]
     Dosage: UNK

REACTIONS (10)
  - Hepatitis toxic [Recovered/Resolved]
  - Hepatic function abnormal [Recovered/Resolved]
  - Diabetes mellitus inadequate control [Recovered/Resolved]
  - Wound [Recovered/Resolved]
  - White blood cell count decreased [Recovered/Resolved]
  - Nausea [Recovering/Resolving]
  - Diarrhoea [Recovered/Resolved]
  - Tremor [Recovered/Resolved]
  - Haemoglobin decreased [Unknown]
  - Red blood cell count decreased [Unknown]
